FAERS Safety Report 19227991 (Version 2)
Quarter: 2021Q2

REPORT INFORMATION
  Report Type: Report from Study
  Country: US (occurrence: US)
  Receive Date: 20210506
  Receipt Date: 20210604
  Transmission Date: 20210717
  Serious: Yes (Death, Other)
  Sender: FDA-Public Use
  Company Number: US-TEVA-2021-US-1908272

PATIENT
  Sex: Male

DRUGS (1)
  1. CLOZAPINE TEVA [Suspect]
     Active Substance: CLOZAPINE
     Route: 048

REACTIONS (4)
  - Respiratory disorder [Fatal]
  - Lung neoplasm malignant [Unknown]
  - Neutrophil count decreased [Unknown]
  - Neutrophil count abnormal [Unknown]
